FAERS Safety Report 13386496 (Version 1)
Quarter: 2017Q1

REPORT INFORMATION
  Report Type: Spontaneous
  Country: FR (occurrence: FR)
  Receive Date: 20170330
  Receipt Date: 20170330
  Transmission Date: 20170429
  Serious: Yes (Hospitalization)
  Sender: FDA-Public Use
  Company Number: FR-SA-2017SA052698

PATIENT
  Age: 88 Year
  Sex: Male

DRUGS (3)
  1. SOTALOL. [Concomitant]
     Active Substance: SOTALOL
     Indication: HYPERTENSION
     Route: 065
  2. CLOPIDOGREL BISULFATE. [Suspect]
     Active Substance: CLOPIDOGREL BISULFATE
     Indication: ANTIPLATELET THERAPY
     Route: 065
  3. NICARDIPINE [Concomitant]
     Active Substance: NICARDIPINE
     Indication: HYPERTENSION
     Route: 065

REACTIONS (6)
  - Hypoglycaemia [Recovered/Resolved]
  - Blood insulin increased [Recovering/Resolving]
  - Anti-insulin antibody [Recovering/Resolving]
  - Epilepsy [Unknown]
  - Anti-insulin receptor antibody [Recovering/Resolving]
  - Insulin autoimmune syndrome [Recovering/Resolving]
